FAERS Safety Report 12685459 (Version 1)
Quarter: 2016Q3

REPORT INFORMATION
  Report Type: Spontaneous
  Country: AU (occurrence: AU)
  Receive Date: 20160825
  Receipt Date: 20160825
  Transmission Date: 20161109
  Serious: Yes (Other)
  Sender: FDA-Public Use
  Company Number: AU-BAYER-2016-159908

PATIENT
  Sex: Female
  Weight: 2.46 kg

DRUGS (3)
  1. PRAVASTATIN. [Concomitant]
     Active Substance: PRAVASTATIN
     Route: 064
  2. ACETYLSALICYLIC ACID({=100 MG) [Suspect]
     Active Substance: ASPIRIN
     Route: 064
  3. METOPROLOL. [Concomitant]
     Active Substance: METOPROLOL
     Route: 064

REACTIONS (2)
  - Low birth weight baby [None]
  - Foetal exposure during pregnancy [None]
